FAERS Safety Report 24989741 (Version 2)
Quarter: 2025Q1

REPORT INFORMATION
  Report Type: Spontaneous
  Country: US (occurrence: US)
  Receive Date: 20250220
  Receipt Date: 20250325
  Transmission Date: 20250409
  Serious: Yes (Other)
  Sender: COLGATE
  Company Number: US-COLGATE PALMOLIVE COMPANY-20250200193

PATIENT
  Age: 72 Year
  Sex: Female

DRUGS (1)
  1. COLGATE OPTIC WHITE ADVANCED VIBRANT CLEAN [Suspect]
     Active Substance: SODIUM MONOFLUOROPHOSPHATE

REACTIONS (6)
  - Lip swelling [Recovered/Resolved]
  - Oral pain [Recovered/Resolved]
  - Swollen tongue [Recovered/Resolved]
  - Tongue discomfort [Recovered/Resolved]
  - Dyspnoea [Recovered/Resolved]
  - Glossodynia [Recovered/Resolved]

NARRATIVE: CASE EVENT DATE: 20250201
